FAERS Safety Report 24303028 (Version 1)
Quarter: 2024Q3

REPORT INFORMATION
  Report Type: Spontaneous
  Country: US (occurrence: None)
  Receive Date: 20240909
  Receipt Date: 20240909
  Transmission Date: 20241017
  Serious: Yes (Other)
  Sender: Public
  Company Number: None

PATIENT
  Age: 49 Year
  Sex: Female

DRUGS (1)
  1. PROTAMINE [Suspect]
     Active Substance: PROTAMINE

REACTIONS (5)
  - Procedural complication [None]
  - Anaphylactic reaction [None]
  - Bronchospasm [None]
  - Hypoxia [None]
  - Wheezing [None]

NARRATIVE: CASE EVENT DATE: 20240908
